FAERS Safety Report 16943998 (Version 2)
Quarter: 2019Q4

REPORT INFORMATION
  Report Type: Spontaneous
  Country: MX (occurrence: MX)
  Receive Date: 20191022
  Receipt Date: 20191122
  Transmission Date: 20200122
  Serious: Yes (Hospitalization, Other)
  Sender: FDA-Public Use
  Company Number: MX-B.I. PHARMACEUTICALS,INC./RIDGEFIELD-2019-BI-108752

PATIENT
  Age: 80 Year
  Sex: Male

DRUGS (1)
  1. OFEV [Suspect]
     Active Substance: NINTEDANIB
     Indication: PERIPHERAL VENOUS DISEASE
     Route: 065

REACTIONS (7)
  - Diarrhoea [Recovered/Resolved]
  - Hypokalaemia [Unknown]
  - Renal disorder [Recovered/Resolved]
  - Weight decreased [Unknown]
  - Dehydration [Recovered/Resolved]
  - Hepatic enzyme increased [Recovered/Resolved]
  - Gastrointestinal disorder [Recovered/Resolved]
